FAERS Safety Report 4357677-9 (Version None)
Quarter: 2004Q2

REPORT INFORMATION
  Report Type: 
  Country: None (occurrence: None)
  Receive Date: 20040512
  Receipt Date: 20040512
  Transmission Date: 20050107
  Serious: Yes (Life-Threatening)
  Sender: FDA-Public Use
  Company Number: None

PATIENT
  Age: 42 Year
  Sex: Female
  Weight: 61.2356 kg

DRUGS (1)
  1. WELLBUTRIN XL [Suspect]
     Indication: DEPRESSION
     Dosage: ONE TAB Q DAY ORAL
     Route: 048

REACTIONS (8)
  - APATHY [None]
  - CONDITION AGGRAVATED [None]
  - CRYING [None]
  - DECREASED INTEREST [None]
  - DEPRESSION [None]
  - DRUG EFFECT DECREASED [None]
  - SELF ESTEEM DECREASED [None]
  - SUICIDAL IDEATION [None]
